FAERS Safety Report 26164104 (Version 2)
Quarter: 2025Q4

REPORT INFORMATION
  Report Type: Report from Study
  Country: US (occurrence: US)
  Receive Date: 20251216
  Receipt Date: 20251219
  Transmission Date: 20260117
  Serious: Yes (Hospitalization)
  Sender: MALLINCKRODT
  Company Number: US-MALLINCKRODT-MNK202507682

PATIENT
  Age: 74 Year
  Sex: Female

DRUGS (3)
  1. CORTICOTROPIN [Suspect]
     Active Substance: CORTICOTROPIN
     Indication: Rheumatoid arthritis
     Dosage: 80 UNITS
     Route: 058
     Dates: start: 20251016, end: 2025
  2. CORTICOTROPIN [Suspect]
     Active Substance: CORTICOTROPIN
     Dosage: 80 UNITS
     Route: 058
     Dates: start: 2025, end: 2025
  3. METHOTREXATE [Concomitant]
     Active Substance: METHOTREXATE
     Indication: Swelling
     Dosage: UNKNOWN

REACTIONS (9)
  - Hospitalisation [Unknown]
  - Confusional state [Unknown]
  - Memory impairment [Unknown]
  - Dysphagia [Unknown]
  - Gait inability [Unknown]
  - Dry mouth [Unknown]
  - General physical health deterioration [Unknown]
  - Cognitive disorder [Not Recovered/Not Resolved]
  - Asthenia [Unknown]

NARRATIVE: CASE EVENT DATE: 20250101
